FAERS Safety Report 4733198-6 (Version None)
Quarter: 2005Q3

REPORT INFORMATION
  Report Type: 
  Country: None (occurrence: None)
  Receive Date: 20050725
  Receipt Date: 20040903
  Transmission Date: 20060218
  Serious: Yes (Other)
  Sender: FDA-Public Use
  Company Number: USA-2004-0016842

PATIENT
  Age: 62 Year
  Sex: Female
  Weight: 90.7 kg

DRUGS (6)
  1. MS CONTIN [Suspect]
     Dosage: 30 MG, Q12H, ORAL
     Route: 048
  2. PREMARIN [Concomitant]
  3. METOPROLOL [Concomitant]
  4. CALCIUM GLUCONATE [Concomitant]
  5. VITAMIN D [Concomitant]
  6. PREDNISONE [Concomitant]

REACTIONS (22)
  - ABDOMINAL DISTENSION [None]
  - ALCOHOL POISONING [None]
  - ARTHRALGIA [None]
  - DYSAESTHESIA [None]
  - DYSPEPSIA [None]
  - FATIGUE [None]
  - HEADACHE [None]
  - HOT FLUSH [None]
  - HYPERTENSION [None]
  - HYPOAESTHESIA [None]
  - INADEQUATE ANALGESIA [None]
  - JOINT STIFFNESS [None]
  - MYALGIA [None]
  - NAUSEA [None]
  - PAIN [None]
  - PARAESTHESIA [None]
  - POLYSUBSTANCE ABUSE [None]
  - PRURITUS [None]
  - RASH [None]
  - TACHYCARDIA [None]
  - VERTIGO [None]
  - VOMITING [None]
